FAERS Safety Report 5445955-1 (Version None)
Quarter: 2007Q3

REPORT INFORMATION
  Report Type: 
  Country: None (occurrence: None)
  Receive Date: 20070907
  Receipt Date: 20070828
  Transmission Date: 20080115
  Serious: Yes (Hospitalization, Other)
  Sender: FDA-Public Use
  Company Number: JP-JNJFOC-20070103376

PATIENT
  Sex: Female
  Weight: 41 kg

DRUGS (7)
  1. REMICADE [Suspect]
     Route: 042
  2. REMICADE [Suspect]
     Dosage: 2 INFUSIONS ON UNKNOWN DATES
     Route: 042
  3. REMICADE [Suspect]
     Indication: CROHN'S DISEASE
     Dosage: 2 INFUSIONS ON UNKNOWN DATES
     Route: 042
  4. IMURAN [Suspect]
     Indication: CROHN'S DISEASE
     Route: 048
  5. PENTASA [Suspect]
     Indication: CROHN'S DISEASE
     Route: 048
  6. ELENTAL [Suspect]
     Indication: CROHN'S DISEASE
  7. NORVASC [Suspect]
     Indication: HYPERTENSION

REACTIONS (6)
  - DISSEMINATED TUBERCULOSIS [None]
  - HAEMATOCRIT DECREASED [None]
  - HYPOALBUMINAEMIA [None]
  - HYPOKALAEMIA [None]
  - HYPONATRAEMIA [None]
  - LIVER FUNCTION TEST ABNORMAL [None]
